FAERS Safety Report 7384878 (Version 2)
Quarter: 2013Q1

REPORT INFORMATION
  Report Type: Spontaneous
  Country: FR (occurrence: FR)
  Receive Date: 20100512
  Receipt Date: 20130322
  Transmission Date: 20140127
  Serious: Yes (Hospitalization)
  Sender: FDA-Public Use
  Company Number: FR-TYCO HEALTHCARE/MALLINCKRODT-T201001174

PATIENT
  Age: 51 Year
  Sex: Male

DRUGS (1)
  1. OPTIJECT 350 [Suspect]
     Indication: COMPUTERISED TOMOGRAM
     Dosage: 125 ML, SINGLE
     Route: 042
     Dates: start: 20091216, end: 20091216

REACTIONS (11)
  - Rash maculo-papular [Recovered/Resolved]
  - Oedema peripheral [Recovered/Resolved]
  - Eosinophilia [Not Recovered/Not Resolved]
  - Weight increased [None]
  - Hepatocellular injury [None]
  - Hepatomegaly [None]
  - Lymphadenopathy [None]
  - Inflammation [None]
  - Liver disorder [None]
  - Toxic skin eruption [None]
  - Gleich^s syndrome [None]
